FAERS Safety Report 5059802-3 (Version None)
Quarter: 2006Q3

REPORT INFORMATION
  Report Type: 
  Country: None (occurrence: None)
  Receive Date: 20060724
  Receipt Date: 20060704
  Transmission Date: 20061208
  Serious: Yes (Hospitalization)
  Sender: FDA-Public Use
  Company Number: JP-GLAXOSMITHKLINE-B0430464A

PATIENT
  Age: 65 Year
  Sex: Female

DRUGS (2)
  1. SAWACILLIN [Suspect]
     Dosage: 2CAP FOUR TIMES PER DAY
     Route: 048
     Dates: start: 20060124, end: 20060127
  2. RABEPRAZOLE SODIUM [Concomitant]
     Dosage: 1TAB FOUR TIMES PER DAY
     Route: 048
     Dates: start: 20060124, end: 20060127

REACTIONS (7)
  - ABDOMINAL PAIN [None]
  - C-REACTIVE PROTEIN INCREASED [None]
  - CLOSTRIDIUM DIFFICILE COLITIS [None]
  - DIARRHOEA [None]
  - MELAENA [None]
  - OEDEMA [None]
  - WHITE BLOOD CELL COUNT INCREASED [None]
